FAERS Safety Report 18981256 (Version 2)
Quarter: 2021Q3

REPORT INFORMATION
  Report Type: Spontaneous
  Country: US (occurrence: US)
  Receive Date: 20210308
  Receipt Date: 20210802
  Transmission Date: 20211014
  Serious: Yes (Hospitalization)
  Sender: FDA-Public Use
  Company Number: US-SAOL THERAPEUTICS-2021SAO00069

PATIENT
  Age: 4 Year
  Sex: Male

DRUGS (13)
  1. BACLOFEN. [Suspect]
     Active Substance: BACLOFEN
     Dosage: 600 MCG/DAY
     Route: 037
  2. BACLOFEN. [Suspect]
     Active Substance: BACLOFEN
     Dosage: 800 MCG/DAY
     Route: 037
  3. BACLOFEN. [Suspect]
     Active Substance: BACLOFEN
     Dosage: 150 MCG/DAY
     Route: 037
  4. BACLOFEN. [Suspect]
     Active Substance: BACLOFEN
     Indication: MUSCLE SPASTICITY
     Dosage: 10 MG, 3X/DAY
     Route: 048
  5. DIAZEPAM. [Concomitant]
     Active Substance: DIAZEPAM
     Indication: MUSCLE SPASTICITY
     Dosage: 5 MG EVERY 8 HOURS
     Route: 065
  6. CHEMO DENERVATION [Concomitant]
     Route: 065
  7. BACLOFEN. [Suspect]
     Active Substance: BACLOFEN
     Dosage: DECREASED BY 50 MCG EVERY 12 HOURS
     Route: 037
  8. BACLOFEN. [Suspect]
     Active Substance: BACLOFEN
     Dosage: 450 MCG/DAY
     Route: 037
  9. BACLOFEN. [Suspect]
     Active Substance: BACLOFEN
     Dosage: 475 MCG/DAY
     Route: 037
  10. BACLOFEN. [Suspect]
     Active Substance: BACLOFEN
     Indication: MUSCLE SPASTICITY
     Dosage: 50 MCG/DAY
     Route: 037
  11. BACLOFEN. [Suspect]
     Active Substance: BACLOFEN
     Dosage: 675 MCG/DAY
     Route: 037
  12. BACLOFEN. [Suspect]
     Active Substance: BACLOFEN
     Dosage: 425 MCG/DAY
     Route: 037
  13. BACLOFEN. [Suspect]
     Active Substance: BACLOFEN
     Dosage: 375 MCG/DAY
     Route: 037

REACTIONS (5)
  - Dystonia [Recovered/Resolved]
  - Poor quality sleep [Recovered/Resolved]
  - Pain [Recovered/Resolved]
  - Paradoxical drug reaction [Recovered/Resolved]
  - Muscle spasms [Recovered/Resolved]
